FAERS Safety Report 13088592 (Version 1)
Quarter: 2016Q4

REPORT INFORMATION
  Report Type: Spontaneous
  Country: US (occurrence: US)
  Receive Date: 20161230
  Receipt Date: 20161230
  Transmission Date: 20170207
  Serious: Yes (Life-Threatening, Hospitalization)
  Sender: FDA-Public Use
  Company Number: None

PATIENT
  Age: 48 Year
  Sex: Female
  Weight: 81.9 kg

DRUGS (3)
  1. GLUCOTROL [Concomitant]
     Active Substance: GLIPIZIDE
  2. CHLORATRIMETON [Concomitant]
  3. TRINTELLIX [Suspect]
     Active Substance: VORTIOXETINE HYDROBROMIDE
     Indication: DEPRESSION
     Dosage: ?          QUANTITY:1 TABLET(S);?
     Route: 048
     Dates: start: 20160411, end: 20160815

REACTIONS (4)
  - Lactic acidosis [None]
  - Renal impairment [None]
  - Pancreatitis acute [None]
  - Dehydration [None]

NARRATIVE: CASE EVENT DATE: 20160725
